FAERS Safety Report 16231343 (Version 4)
Quarter: 2019Q3

REPORT INFORMATION
  Report Type: Report from Study
  Country: None (occurrence: TR)
  Receive Date: 20190424
  Receipt Date: 20190724
  Transmission Date: 20191004
  Serious: Yes (Other)
  Sender: FDA-Public Use
  Company Number: TR-ABBVIE-19K-161-2751761-00

PATIENT
  Age: 63 Year
  Sex: Female
  Weight: 83 kg

DRUGS (4)
  1. DEVIT D3 [Concomitant]
     Indication: HYPOVITAMINOSIS
     Dosage: 1X6 DROPS
     Route: 048
     Dates: start: 2017
  2. ZENTIUS D [Concomitant]
     Indication: HYPOVITAMINOSIS
     Route: 048
     Dates: start: 20180116
  3. HUMIRA [Suspect]
     Active Substance: ADALIMUMAB
     Indication: RHEUMATOID ARTHRITIS
     Dosage: HUMIRA CITRATE FREE
     Route: 058
     Dates: start: 20180116, end: 20190601
  4. HUMIRA [Suspect]
     Active Substance: ADALIMUMAB
     Dosage: CITRATE FREE
     Route: 058
     Dates: start: 20190606

REACTIONS (3)
  - Hypertension [Not Recovered/Not Resolved]
  - Cerebral thrombosis [Not Recovered/Not Resolved]
  - Dry mouth [Not Recovered/Not Resolved]

NARRATIVE: CASE EVENT DATE: 201803
